FAERS Safety Report 17885583 (Version 1)
Quarter: 2020Q2

REPORT INFORMATION
  Report Type: Not Available
  Country: GB (occurrence: GB)
  Receive Date: 20200611
  Receipt Date: 20200611
  Transmission Date: 20200714
  Serious: Yes (Other)
  Sender: FDA-Public Use
  Company Number: GB-SYNTHON BV-IN51PV20_53761

PATIENT
  Age: 84 Year
  Sex: Male
  Weight: 85 kg

DRUGS (11)
  1. TAMSULOSIN [Suspect]
     Active Substance: TAMSULOSIN
     Indication: PRODUCT USED FOR UNKNOWN INDICATION
     Dosage: 400 MICROGRAM, QD (MR)
     Route: 065
     Dates: start: 20191125
  2. VENTOLINE [SALBUTAMOL] [Concomitant]
     Active Substance: ALBUTEROL SULFATE
     Dosage: 2 DOSAGE FORM, PRN (QDS)
     Route: 055
     Dates: start: 20191003
  3. PREDNISOLONE. [Concomitant]
     Active Substance: PREDNISOLONE
     Dosage: 6 DOSAGE FORM, QD (FOR ONE WEEK)
     Dates: start: 20200113, end: 20200120
  4. TIOTROPIUM [Concomitant]
     Active Substance: TIOTROPIUM
     Dosage: 1 DOSAGE FORM, QD
     Dates: start: 20191003
  5. AMOXICILLIN. [Concomitant]
     Active Substance: AMOXICILLIN
     Dosage: 3 DOSAGE FORM, QD
     Dates: start: 20200113, end: 20200120
  6. ATORVASTATIN [Concomitant]
     Active Substance: ATORVASTATIN
     Dosage: 1 DOSAGE FORM, QD
     Dates: start: 20191003
  7. SITAGLIPTIN [Concomitant]
     Active Substance: SITAGLIPTIN
     Dosage: 1 DOSAGE FORM, QD
     Dates: start: 20191003
  8. CLENIL MODULITE [Concomitant]
     Active Substance: BECLOMETHASONE DIPROPIONATE
     Dosage: 2 DOSAGE FORM, QD (PUFFS)
     Dates: start: 20191003
  9. DAPAGLIFLOZIN. [Concomitant]
     Active Substance: DAPAGLIFLOZIN
     Dosage: 1 DOSAGE FORM, QD
     Dates: start: 20191003
  10. OXIS [Concomitant]
     Active Substance: FORMOTEROL FUMARATE
     Dosage: 1 DOSAGE FORM (1-2 TIMES/DAY)
     Route: 055
     Dates: start: 20191003
  11. METFORMIN [Concomitant]
     Active Substance: METFORMIN HYDROCHLORIDE
     Dosage: 4 DOSAGE FORM, QD
     Dates: start: 20191003

REACTIONS (1)
  - Visual acuity reduced [Recovered/Resolved]
